FAERS Safety Report 9255469 (Version 1)
Quarter: 2013Q2

REPORT INFORMATION
  Report Type: Spontaneous
  Country: IT (occurrence: None)
  Receive Date: 20130422
  Receipt Date: 20130422
  Transmission Date: 20140414
  Serious: Yes (Hospitalization)
  Sender: FDA-Public Use
  Company Number: IMP_06083_2012

PATIENT
  Age: 75 Year
  Sex: Female

DRUGS (1)
  1. ANAGRELIDE (ANAGRELIDE) [Suspect]
     Indication: THROMBOCYTOSIS

REACTIONS (1)
  - Stress cardiomyopathy [None]
